FAERS Safety Report 9351526 (Version 2)
Quarter: 2013Q3

REPORT INFORMATION
  Report Type: Spontaneous
  Country: US (occurrence: US)
  Receive Date: 20130617
  Receipt Date: 20130918
  Transmission Date: 20140515
  Serious: No
  Sender: FDA-Public Use
  Company Number: US-PFIZER INC-2013177463

PATIENT
  Age: 60 Year
  Sex: Male
  Weight: 77.1 kg

DRUGS (8)
  1. XELJANZ [Suspect]
     Indication: RHEUMATOID ARTHRITIS
     Dosage: 5 MG, 2X/DAY
     Route: 048
     Dates: start: 20130404
  2. MTX [Concomitant]
     Dosage: 20 UNK, WEEKLY (20 Q WK)
  3. LYRICA [Concomitant]
     Dosage: 150 UNK, 1X/DAY (150 QHS)
  4. PREDNISONE [Concomitant]
     Dosage: 5 UNK, 1X/DAY (5 QD)
  5. LANTUS [Concomitant]
     Dosage: 17 UNK, 1X/DAY (17 QD)
  6. HYDROXYCHLOROQUINE [Concomitant]
     Dosage: 200 UNK, 2X/DAY (200 BID)
  7. TESTOSTERONE [Concomitant]
     Dosage: UNK
  8. FENTANYL [Concomitant]
     Dosage: UNK

REACTIONS (1)
  - Fungal infection [Recovered/Resolved]
